FAERS Safety Report 7321378-5 (Version None)
Quarter: 2011Q1

REPORT INFORMATION
  Report Type: 
  Country: None (occurrence: None)
  Receive Date: 20110228
  Receipt Date: 20110217
  Transmission Date: 20110831
  Serious: Yes (Other)
  Sender: FDA-Public Use
  Company Number: CA-JNJFOC-20100300346

PATIENT
  Sex: Female
  Weight: 65 kg

DRUGS (3)
  1. REMICADE [Suspect]
     Indication: CROHN'S DISEASE
     Route: 042
  2. REMICADE [Suspect]
     Dosage: DOSE: 350-400 MG
     Route: 042
  3. REMICADE [Suspect]
     Route: 042

REACTIONS (2)
  - LOWER RESPIRATORY TRACT INFECTION [None]
  - SURGERY [None]
